FAERS Safety Report 12601707 (Version 1)
Quarter: 2016Q3

REPORT INFORMATION
  Report Type: Report from Study
  Country: JP (occurrence: JP)
  Receive Date: 20160728
  Receipt Date: 20160728
  Transmission Date: 20161109
  Serious: Yes (Hospitalization, Other)
  Sender: FDA-Public Use
  Company Number: JP-BRISTOL-MYERS SQUIBB COMPANY-BMS-2015-009795

PATIENT
  Age: 68 Year
  Sex: Female
  Weight: 59.2 kg

DRUGS (2)
  1. DACLATASVIR DIHYDROCHLORIDE [Suspect]
     Active Substance: DACLATASVIR DIHYDROCHLORIDE
     Indication: HEPATIC CIRRHOSIS
     Dosage: 60 MG, QD
     Route: 048
     Dates: start: 20141107
  2. ASUNAPREVIR [Suspect]
     Active Substance: ASUNAPREVIR
     Indication: HEPATIC CIRRHOSIS
     Dosage: 100 MG, BID
     Route: 048
     Dates: start: 20141107

REACTIONS (1)
  - Large intestinal ulcer haemorrhage [Recovering/Resolving]

NARRATIVE: CASE EVENT DATE: 20150121
